FAERS Safety Report 12365579 (Version 1)
Quarter: 2016Q2

REPORT INFORMATION
  Report Type: Spontaneous
  Country: US (occurrence: None)
  Receive Date: 20160512
  Receipt Date: 20160512
  Transmission Date: 20160815
  Serious: Yes (Other)
  Sender: FDA-Public Use
  Company Number: None

PATIENT
  Age: 55 Year
  Sex: Female
  Weight: 53.52 kg

DRUGS (2)
  1. ESTRING [Suspect]
     Active Substance: ESTRADIOL
     Indication: ATROPHIC VULVOVAGINITIS
     Route: 067
     Dates: start: 20160320, end: 20160404
  2. LIALDA [Concomitant]
     Active Substance: MESALAMINE

REACTIONS (6)
  - Vomiting [None]
  - Seizure [None]
  - Migraine [None]
  - Hypothermia [None]
  - Labile blood pressure [None]
  - Nausea [None]

NARRATIVE: CASE EVENT DATE: 20160404
